FAERS Safety Report 21342745 (Version 1)
Quarter: 2022Q3

REPORT INFORMATION
  Report Type: Spontaneous
  Country: US (occurrence: US)
  Receive Date: 20220916
  Receipt Date: 20220916
  Transmission Date: 20221027
  Serious: No
  Sender: FDA-Public Use
  Company Number: US-ORGANON-O2209USA000947

PATIENT
  Age: 44 Year
  Sex: Male

DRUGS (2)
  1. PREGNYL [Suspect]
     Active Substance: CHORIOGONADOTROPIN ALFA
     Dosage: AS DIRECTED BY THE PHYSICIAN
     Dates: start: 202209
  2. STERILE WATER [Suspect]
     Active Substance: WATER
     Dosage: UNK
     Dates: start: 202209

REACTIONS (2)
  - Wrong technique in product usage process [Unknown]
  - No adverse event [Unknown]

NARRATIVE: CASE EVENT DATE: 20220901
